FAERS Safety Report 20254521 (Version 1)
Quarter: 2021Q4

REPORT INFORMATION
  Report Type: Spontaneous
  Country: US (occurrence: US)
  Receive Date: 20211230
  Receipt Date: 20211230
  Transmission Date: 20220303
  Serious: Yes (Death)
  Sender: FDA-Public Use
  Company Number: US-BAUSCH-BL-2021-042426

PATIENT
  Age: 77 Year
  Sex: Male

DRUGS (8)
  1. DIAZEPAM [Suspect]
     Active Substance: DIAZEPAM
     Indication: Product used for unknown indication
     Route: 065
  2. OXYCODONE [Suspect]
     Active Substance: OXYCODONE
     Indication: Product used for unknown indication
     Dosage: INGESTION
     Route: 048
  3. OXYCODONE [Suspect]
     Active Substance: OXYCODONE
     Route: 065
  4. BUTALBITAL [Suspect]
     Active Substance: BUTALBITAL
     Indication: Product used for unknown indication
     Dosage: INGESTION
     Route: 048
  5. BUTALBITAL [Suspect]
     Active Substance: BUTALBITAL
     Route: 065
  6. ALCOHOL [Suspect]
     Active Substance: ALCOHOL
     Indication: Product used for unknown indication
     Dosage: INGESTION
     Route: 048
  7. ALCOHOL [Suspect]
     Active Substance: ALCOHOL
     Route: 065
  8. DIAZEPAM [Suspect]
     Active Substance: DIAZEPAM
     Indication: Product used for unknown indication
     Dosage: INGESTION
     Route: 048

REACTIONS (1)
  - Drug abuse [Fatal]
